FAERS Safety Report 5761780-6 (Version None)
Quarter: 2008Q2

REPORT INFORMATION
  Report Type: 
  Country: None (occurrence: None)
  Receive Date: 20080606
  Receipt Date: 20080526
  Transmission Date: 20081010
  Serious: Yes (Hospitalization)
  Sender: FDA-Public Use
  Company Number: FR-PFIZER INC-2008045173

PATIENT
  Sex: Female

DRUGS (9)
  1. ALDACTONE [Suspect]
     Dosage: DAILY DOSE:50MG-TEXT:50 MG-FREQ:ONCE DAILY
     Route: 048
  2. COAPROVEL [Interacting]
     Dosage: DAILY DOSE:300MG-TEXT:300 MG/ 25 MG-FREQ:ONCE DAILY
     Route: 048
  3. LASILIX [Interacting]
     Dosage: DAILY DOSE:80MG-TEXT:80 MG-FREQ:DAILY
     Route: 048
  4. LASILIX [Interacting]
     Dosage: DAILY DOSE:60MG-TEXT:60 MG-FREQ:DAILY
     Route: 048
  5. CLOPIDOGREL BISULFATE [Concomitant]
     Route: 048
  6. ACETYLSALICYLATE LYSINE [Concomitant]
     Route: 048
  7. AMIODARONE HCL [Concomitant]
     Route: 048
  8. DEXTROPROPOXYPHENE [Concomitant]
  9. ECONAZOLE NITRATE [Concomitant]

REACTIONS (5)
  - BLOOD CREATININE INCREASED [None]
  - BLOOD POTASSIUM INCREASED [None]
  - DEHYDRATION [None]
  - DRUG INTERACTION [None]
  - HYPONATRAEMIA [None]
